FAERS Safety Report 11596559 (Version 1)
Quarter: 2015Q4

REPORT INFORMATION
  Report Type: Spontaneous
  Country: US (occurrence: None)
  Receive Date: 20151005
  Receipt Date: 20151005
  Transmission Date: 20160304
  Serious: Yes (Death)
  Sender: FDA-Public Use
  Company Number: None

PATIENT
  Age: 60 Year
  Sex: Male
  Weight: 88.45 kg

DRUGS (7)
  1. TESTOSTERONE CYP ^GS^ OIL (4 ML) 200 MG/ML APS, PALM HARBOR FL [Suspect]
     Active Substance: TESTOSTERONE CYPIONATE
     Indication: MUSCLE BUILDING THERAPY
     Dosage: INTO THE MUSCLE
     Dates: start: 20131101, end: 20140426
  2. VIT. A, B, C [Concomitant]
  3. SERMORELIN [Concomitant]
     Active Substance: SERMORELIN
  4. BACTERIOSTATIC WATER [Concomitant]
     Active Substance: WATER
  5. ANAST/DHEA/PREG [Concomitant]
  6. INSULIN [Concomitant]
     Active Substance: INSULIN NOS
  7. FISH OIL [Concomitant]
     Active Substance: FISH OIL

REACTIONS (1)
  - Death [None]

NARRATIVE: CASE EVENT DATE: 20140426
